FAERS Safety Report 21610020 (Version 4)
Quarter: 2023Q4

REPORT INFORMATION
  Report Type: Spontaneous
  Country: CA (occurrence: CA)
  Receive Date: 20221117
  Receipt Date: 20231219
  Transmission Date: 20240110
  Serious: Yes (Other)
  Sender: FDA-Public Use
  Company Number: CA-PFIZER INC-PV202200051501

PATIENT
  Age: 66 Year
  Sex: Male

DRUGS (4)
  1. BRAFTOVI [Suspect]
     Active Substance: ENCORAFENIB
     Indication: Colorectal cancer metastatic
     Dosage: 450 MG, DAILY (ONCE DAILY)
     Route: 048
     Dates: start: 20221122, end: 202211
  2. BRAFTOVI [Suspect]
     Active Substance: ENCORAFENIB
     Dosage: 150 MG, DAILY, (2X175 MG CAPSULE) ( (ONCE DAILY)
     Route: 048
  3. CETUXIMAB [Concomitant]
     Active Substance: CETUXIMAB
     Dosage: UNK, DOSE + FREQUENCY UNSPECIFIED
  4. PROCHLORPERAZINE MALEATE [Concomitant]
     Active Substance: PROCHLORPERAZINE MALEATE
     Dosage: 10 MG, Q4-6 HR
     Route: 048

REACTIONS (9)
  - Type 1 diabetes mellitus [Unknown]
  - Hypothyroidism [Unknown]
  - Off label use [Unknown]
  - Product use issue [Unknown]
  - Cancer fatigue [Unknown]
  - Hypertension [Unknown]
  - Dyslipidaemia [Unknown]
  - Depression [Unknown]
  - Gastrooesophageal reflux disease [Unknown]
